FAERS Safety Report 7897845-2 (Version None)
Quarter: 2011Q4

REPORT INFORMATION
  Report Type: 
  Country: None (occurrence: None)
  Receive Date: 20111107
  Receipt Date: 20111024
  Transmission Date: 20120403
  Serious: Yes (Other)
  Sender: FDA-Public Use
  Company Number: PHHY2011CO95261

PATIENT
  Sex: Male

DRUGS (2)
  1. IMMUNOSUPPRESSANTS [Concomitant]
  2. NEORAL [Suspect]
     Dosage: UNK UKN, UNK
     Dates: start: 20110606

REACTIONS (1)
  - HERNIA [None]
